FAERS Safety Report 9330164 (Version 2)
Quarter: 2013Q2

REPORT INFORMATION
  Report Type: Report from Study
  Country: US (occurrence: US)
  Receive Date: 20130604
  Receipt Date: 20130621
  Transmission Date: 20140414
  Serious: Yes (Hospitalization)
  Sender: FDA-Public Use
  Company Number: US-US-EMD SERONO, INC.-7214549

PATIENT
  Age: 60 Year
  Sex: Female

DRUGS (3)
  1. REBIF [Suspect]
     Indication: MULTIPLE SCLEROSIS
     Route: 058
     Dates: start: 20130415
  2. REBIF [Suspect]
     Route: 058
     Dates: end: 201306
  3. TYLENOL                            /00020001/ [Concomitant]
     Indication: PREMEDICATION

REACTIONS (6)
  - Dyspnoea [Recovering/Resolving]
  - Cardiac failure [Unknown]
  - Cardiac valve disease [Unknown]
  - Multiple sclerosis [Unknown]
  - Gastrointestinal motility disorder [Not Recovered/Not Resolved]
  - Injection site pain [Unknown]
